FAERS Safety Report 7939741-8 (Version None)
Quarter: 2011Q4

REPORT INFORMATION
  Report Type: 
  Country: None (occurrence: None)
  Receive Date: 20111125
  Receipt Date: 20111118
  Transmission Date: 20120403
  Serious: Yes (Other)
  Sender: FDA-Public Use
  Company Number: PHHY2011DK08505

PATIENT
  Sex: Female

DRUGS (14)
  1. SUTENT [Suspect]
     Indication: RENAL CANCER METASTATIC
     Dosage: 25 MG, QD
     Route: 048
     Dates: start: 20080402, end: 20100617
  2. ZOMETA [Suspect]
     Indication: OSTEOPOROSIS
     Dosage: 4 MG, UNK
     Route: 042
     Dates: start: 20090428
  3. CENTYL [Concomitant]
     Indication: HYPERTENSION
     Dosage: 1 DF, DAILY
     Route: 065
  4. MICARDIS [Concomitant]
     Indication: HYPERTENSION
     Dosage: 40 MG, QD
     Route: 065
  5. MORPHINE SULFATE [Concomitant]
     Dosage: 30 MG, UNK
     Route: 065
  6. EMPERAL [Concomitant]
     Route: 065
  7. NEXIUM [Concomitant]
     Dosage: 40 MG, QD
     Route: 065
  8. PREDNISOLONE [Concomitant]
  9. ZOMETA [Suspect]
     Dosage: 4 MG, UNK
     Route: 042
     Dates: start: 20090609
  10. ZOMETA [Suspect]
     Dosage: 4 MG, UNK
     Route: 042
     Dates: start: 20090901
  11. METOPROLOL SUCCINATE [Concomitant]
     Indication: HYPERTENSION
     Dosage: 50 MG, QD
     Route: 065
  12. IMIPRAMINE [Concomitant]
     Dosage: 10 MG, QD
     Route: 065
  13. MORPHINE [Concomitant]
     Dosage: 10 MG, PRN
     Route: 065
  14. IMOZOP [Concomitant]
     Route: 065

REACTIONS (5)
  - BONE LESION [None]
  - EXPOSED BONE IN JAW [None]
  - TOOTH LOSS [None]
  - PAIN IN JAW [None]
  - OSTEONECROSIS OF JAW [None]
